FAERS Safety Report 16241659 (Version 1)
Quarter: 2019Q2

REPORT INFORMATION
  Report Type: Spontaneous
  Country: US (occurrence: US)
  Receive Date: 20190426
  Receipt Date: 20190426
  Transmission Date: 20190711
  Serious: No
  Sender: FDA-Public Use
  Company Number: US-BIOGEN-2019BI00716024

PATIENT
  Sex: Female

DRUGS (1)
  1. TECFIDERA [Suspect]
     Active Substance: DIMETHYL FUMARATE
     Indication: MULTIPLE SCLEROSIS
     Route: 048
     Dates: start: 20190314

REACTIONS (5)
  - Malaise [Not Recovered/Not Resolved]
  - Ocular icterus [Not Recovered/Not Resolved]
  - Multiple allergies [Recovered/Resolved]
  - Nausea [Not Recovered/Not Resolved]
  - Drug intolerance [Unknown]
